FAERS Safety Report 18317619 (Version 1)
Quarter: 2020Q3

REPORT INFORMATION
  Report Type: Spontaneous
  Country: US (occurrence: US)
  Receive Date: 20200928
  Receipt Date: 20200928
  Transmission Date: 20201103
  Serious: Yes (Hospitalization)
  Sender: FDA-Public Use
  Company Number: US-AUROBINDO-AUR-APL-2012-03381

PATIENT
  Age: 61 Year
  Sex: Male

DRUGS (2)
  1. SINEMET [Concomitant]
     Active Substance: CARBIDOPA\LEVODOPA
     Indication: PARKINSON^S DISEASE
     Dosage: UNK
     Route: 065
  2. MINOCYCLINE [Suspect]
     Active Substance: MINOCYCLINE HYDROCHLORIDE
     Indication: ACNE
     Dosage: 100 MILLIGRAM, TWO TIMES A DAY
     Route: 048

REACTIONS (12)
  - Orthostatic hypotension [Recovering/Resolving]
  - Ataxia [Recovering/Resolving]
  - Dyspnoea [Recovering/Resolving]
  - Skin discolouration [Not Recovered/Not Resolved]
  - Fall [Recovering/Resolving]
  - Toxicity to various agents [Not Recovered/Not Resolved]
  - Nail discolouration [Not Recovered/Not Resolved]
  - Scleral pigmentation [Not Recovered/Not Resolved]
  - Fatigue [Recovering/Resolving]
  - Normocytic anaemia [Unknown]
  - Dehydration [Recovering/Resolving]
  - Asthenia [Recovering/Resolving]
